FAERS Safety Report 4814608-2 (Version None)
Quarter: 2005Q4

REPORT INFORMATION
  Report Type: 
  Country: None (occurrence: None)
  Receive Date: 20051028
  Receipt Date: 20051024
  Transmission Date: 20060501
  Serious: Yes (Hospitalization)
  Sender: FDA-Public Use
  Company Number: US-GLAXOSMITHKLINE-A0579845A

PATIENT
  Age: 57 Year
  Sex: Female

DRUGS (3)
  1. AVANDIA [Suspect]
     Dosage: 2MG TWICE PER DAY
  2. PLAVIX [Concomitant]
  3. INSULIN [Concomitant]

REACTIONS (7)
  - CARDIOVASCULAR DISORDER [None]
  - HYPOAESTHESIA [None]
  - IMPAIRED HEALING [None]
  - OEDEMA [None]
  - OEDEMA PERIPHERAL [None]
  - SKIN LACERATION [None]
  - TOE AMPUTATION [None]
